FAERS Safety Report 8518411-1 (Version None)
Quarter: 2012Q3

REPORT INFORMATION
  Report Type: 
  Country: None (occurrence: None)
  Receive Date: 20120718
  Receipt Date: 20120508
  Transmission Date: 20120928
  Serious: Yes (Life-Threatening, Hospitalization)
  Sender: FDA-Public Use
  Company Number: US-BRISTOL-MYERS SQUIBB COMPANY-16395253

PATIENT
  Age: 80 Year
  Sex: Male
  Weight: 84 kg

DRUGS (2)
  1. COUMADIN [Suspect]
  2. YERVOY [Suspect]
     Indication: MALIGNANT MELANOMA
     Dosage: NO OF DOSES 2
     Route: 042

REACTIONS (1)
  - PULMONARY ALVEOLAR HAEMORRHAGE [None]
